FAERS Safety Report 20537827 (Version 1)
Quarter: 2022Q1

REPORT INFORMATION
  Report Type: Spontaneous
  Country: US (occurrence: US)
  Receive Date: 20220302
  Receipt Date: 20220302
  Transmission Date: 20220424
  Serious: No
  Sender: FDA-Public Use
  Company Number: US-NOVARTISTESTPH-NVSC2022US044327

PATIENT
  Sex: Male
  Weight: 59 kg

DRUGS (9)
  1. DORZOLAMIDE HYDROCHLORIDE [Suspect]
     Active Substance: DORZOLAMIDE HYDROCHLORIDE
     Indication: Glaucoma
     Dosage: UNK (2% DROPS, TWICE A DAY)
     Route: 065
  2. LATANOPROST [Suspect]
     Active Substance: LATANOPROST
     Indication: Glaucoma
     Dosage: UNK (0.005% EYE DROPS ONCE A DAY AT BEDTIME)
     Route: 065
  3. COMBIGAN [Concomitant]
     Active Substance: BRIMONIDINE TARTRATE\TIMOLOL MALEATE
     Indication: Glaucoma
     Dosage: UNK (0.27% TO 2.5%, TWICE A DAY)
     Route: 065
  4. BENAZEPRIL [Concomitant]
     Active Substance: BENAZEPRIL HYDROCHLORIDE
     Indication: Blood pressure measurement
     Dosage: 40 MG, QD
     Route: 065
  5. LEVOTHYROXINE [Concomitant]
     Active Substance: LEVOTHYROXINE
     Indication: Product used for unknown indication
     Dosage: UNK (100MCG ONCE A DAY)
     Route: 065
  6. SIMVASTATIN [Concomitant]
     Active Substance: SIMVASTATIN
     Indication: Blood cholesterol
     Dosage: 40 MG, QD
     Route: 065
  7. ASPIRIN [Concomitant]
     Active Substance: ASPIRIN
     Indication: Product used for unknown indication
     Dosage: 81 MG, QD
     Route: 065
  8. ZADITOR [Concomitant]
     Active Substance: KETOTIFEN FUMARATE
     Indication: Pruritus
     Dosage: UNK (EYE DROPS)
     Route: 065
  9. REFRESH CLASSIC [Concomitant]
     Active Substance: POLYVINYL ALCOHOL\POVIDONE
     Indication: Product used for unknown indication
     Dosage: UNK (EYE TEARS)
     Route: 065

REACTIONS (2)
  - Eye pruritus [Unknown]
  - Product dose omission issue [Unknown]
